FAERS Safety Report 16522261 (Version 1)
Quarter: 2019Q3

REPORT INFORMATION
  Report Type: Spontaneous
  Country: US (occurrence: US)
  Receive Date: 20190703
  Receipt Date: 20190703
  Transmission Date: 20191004
  Serious: No
  Sender: FDA-Public Use
  Company Number: US-BAYER-2019-125800

PATIENT
  Age: 83 Year
  Sex: Female
  Weight: 51 kg

DRUGS (4)
  1. CLARITIN [Suspect]
     Active Substance: LORATADINE
     Indication: HYPERSENSITIVITY
     Dosage: 1 DF, PRN
     Route: 048
     Dates: start: 201906
  2. CLARITIN [Suspect]
     Active Substance: LORATADINE
     Indication: NASOPHARYNGITIS
  3. VALIUM [Concomitant]
     Active Substance: DIAZEPAM
  4. VITAMIN B [Concomitant]
     Active Substance: VITAMIN B

REACTIONS (4)
  - Muscular weakness [Recovered/Resolved]
  - Discomfort [Recovered/Resolved]
  - Lip swelling [Recovered/Resolved]
  - Restlessness [Recovered/Resolved]

NARRATIVE: CASE EVENT DATE: 201906
